FAERS Safety Report 14072905 (Version 2)
Quarter: 2018Q1

REPORT INFORMATION
  Report Type: Report from Study
  Country: BR (occurrence: BR)
  Receive Date: 20171011
  Receipt Date: 20180126
  Transmission Date: 20180508
  Serious: Yes (Other)
  Sender: FDA-Public Use
  Company Number: PHHY2017BR148710

PATIENT
  Sex: Male

DRUGS (1)
  1. OMNITROPE [Suspect]
     Active Substance: SOMATROPIN
     Indication: PRODUCT USED FOR UNKNOWN INDICATION
     Dosage: 1.5 MG, MONDAY THROUGH SATURDAY
     Route: 058

REACTIONS (3)
  - Product quality issue [Unknown]
  - Weight decreased [Recovering/Resolving]
  - Incorrect dose administered by device [Unknown]
